FAERS Safety Report 6380146-1 (Version None)
Quarter: 2009Q3

REPORT INFORMATION
  Report Type: 
  Country: None (occurrence: None)
  Receive Date: 20090929
  Receipt Date: 20090918
  Transmission Date: 20100115
  Serious: No
  Sender: FDA-Public Use
  Company Number: CA-JNJFOC-20090905936

PATIENT
  Sex: Female

DRUGS (1)
  1. DURAGESIC MAT [Suspect]
     Indication: PAIN
     Dosage: 100 MCG/HR PATCH PLUS 50 MCG/ HR PATCH
     Route: 062
     Dates: start: 20090917

REACTIONS (4)
  - INAPPROPRIATE SCHEDULE OF DRUG ADMINISTRATION [None]
  - NAUSEA [None]
  - SOMNOLENCE [None]
  - THERAPEUTIC RESPONSE DECREASED [None]
